FAERS Safety Report 11798613 (Version 1)
Quarter: 2015Q4

REPORT INFORMATION
  Report Type: Report from Study
  Country: US (occurrence: US)
  Receive Date: 20151203
  Receipt Date: 20151203
  Transmission Date: 20160305
  Serious: No
  Sender: FDA-Public Use
  Company Number: US-AMGEN-USASP2015101225

PATIENT
  Sex: Male

DRUGS (1)
  1. REPATHA [Suspect]
     Active Substance: EVOLOCUMAB
     Indication: PRODUCT USED FOR UNKNOWN INDICATION
     Dosage: UNK
     Route: 065
     Dates: start: 20150911

REACTIONS (6)
  - Joint swelling [Unknown]
  - Rectal discharge [Unknown]
  - Synovial cyst [Unknown]
  - Blood pressure increased [Unknown]
  - Weight increased [Unknown]
  - Photosensitivity reaction [Unknown]
